FAERS Safety Report 18847424 (Version 1)
Quarter: 2021Q1

REPORT INFORMATION
  Report Type: Report from Study
  Country: US (occurrence: US)
  Receive Date: 20210203
  Receipt Date: 20210203
  Transmission Date: 20210419
  Serious: No
  Sender: FDA-Public Use
  Company Number: US-EXELIXIS-CABO-20032022

PATIENT
  Age: 70 Year
  Sex: Male

DRUGS (1)
  1. CABOMETYX [Suspect]
     Active Substance: CABOZANTINIB S-MALATE
     Indication: RENAL CANCER
     Dosage: 20 MG, QD
     Route: 048
     Dates: start: 202006

REACTIONS (11)
  - Oropharyngeal pain [Unknown]
  - Arthralgia [Unknown]
  - Decreased appetite [Unknown]
  - Paraesthesia [Unknown]
  - Abdominal discomfort [Unknown]
  - Fatigue [Unknown]
  - Paranasal sinus hypersecretion [Unknown]
  - Headache [Unknown]
  - Nausea [Unknown]
  - Oesophagitis [Unknown]
  - Diarrhoea [Recovering/Resolving]

NARRATIVE: CASE EVENT DATE: 20200606
